FAERS Safety Report 5526105-X (Version None)
Quarter: 2007Q4

REPORT INFORMATION
  Report Type: 
  Country: None (occurrence: None)
  Receive Date: 20071120
  Receipt Date: 20071105
  Transmission Date: 20080405
  Serious: Yes (Other)
  Sender: FDA-Public Use
  Company Number: 163685ISR

PATIENT
  Age: 38 Year
  Sex: Male

DRUGS (4)
  1. PREDNISOLONE [Suspect]
     Indication: RENAL AND PANCREAS TRANSPLANT
  2. ANTITHYMOCYTE IMMUNOGLOBULIN [Suspect]
     Indication: RENAL AND PANCREAS TRANSPLANT
  3. MYCOPHENOLATE MOFETIL [Suspect]
     Indication: RENAL AND PANCREAS TRANSPLANT
  4. TACROLIMUS [Suspect]
     Indication: RENAL AND PANCREAS TRANSPLANT

REACTIONS (6)
  - CARPAL TUNNEL SYNDROME [None]
  - LIGAMENT DISORDER [None]
  - MOTOR DYSFUNCTION [None]
  - NO THERAPEUTIC RESPONSE [None]
  - SWELLING [None]
  - SYSTEMIC INFLAMMATORY RESPONSE SYNDROME [None]
